FAERS Safety Report 13606927 (Version 1)
Quarter: 2017Q2

REPORT INFORMATION
  Report Type: Spontaneous
  Country: US (occurrence: US)
  Receive Date: 20170602
  Receipt Date: 20170602
  Transmission Date: 20170830
  Serious: No
  Sender: FDA-Public Use
  Company Number: US-NOVEN PHARMACEUTICALS, INC.-ALL1-2007-00411

PATIENT

DRUGS (5)
  1. TENEX [Concomitant]
     Active Substance: GUANFACINE HYDROCHLORIDE
     Indication: ATTENTION DEFICIT/HYPERACTIVITY DISORDER
     Dosage: 1 MG, 3X/DAY:TID
     Route: 048
     Dates: start: 20070703
  2. DAYTRANA [Suspect]
     Active Substance: METHYLPHENIDATE
     Indication: ATTENTION DEFICIT/HYPERACTIVITY DISORDER
     Dosage: 10 MG, 1X/DAY:QD
     Route: 062
     Dates: start: 20070621, end: 20070625
  3. DAYTRANA [Suspect]
     Active Substance: METHYLPHENIDATE
     Dosage: 20 MG, 1X/DAY:QD
     Route: 062
     Dates: start: 20070703
  4. DAYTRANA [Suspect]
     Active Substance: METHYLPHENIDATE
     Dosage: 30 MG, 1X/DAY:QD
     Route: 062
     Dates: start: 20070628, end: 20070703
  5. DAYTRANA [Suspect]
     Active Substance: METHYLPHENIDATE
     Dosage: 20 MG, 1X/DAY:QD
     Route: 062
     Dates: start: 20070625, end: 20070628

REACTIONS (10)
  - Crying [Recovering/Resolving]
  - Affect lability [Recovering/Resolving]
  - Psychomotor hyperactivity [Recovering/Resolving]
  - Weight decreased [Recovering/Resolving]
  - Logorrhoea [Recovering/Resolving]
  - Drug ineffective [Recovering/Resolving]
  - Product quality issue [Unknown]
  - Compulsions [Recovering/Resolving]
  - Tongue biting [Recovering/Resolving]
  - Decreased appetite [Not Recovered/Not Resolved]

NARRATIVE: CASE EVENT DATE: 20070625
